FAERS Safety Report 22234032 (Version 1)
Quarter: 2023Q2

REPORT INFORMATION
  Report Type: Spontaneous
  Country: US (occurrence: None)
  Receive Date: 20230420
  Receipt Date: 20230420
  Transmission Date: 20230722
  Serious: No
  Sender: FDA-Public Use
  Company Number: US-ROCHE-3135210

PATIENT
  Age: 75 Year
  Sex: Male
  Weight: 93.524 kg

DRUGS (1)
  1. ESBRIET [Suspect]
     Active Substance: PIRFENIDONE
     Indication: Product used for unknown indication
     Dosage: TITRATED FROM 265 TO 801 ;ONGOING: YES
     Route: 048
     Dates: start: 202205

REACTIONS (5)
  - Sunburn [Not Recovered/Not Resolved]
  - Pain [Unknown]
  - Nodule [Unknown]
  - Gastric disorder [Unknown]
  - Back pain [Unknown]

NARRATIVE: CASE EVENT DATE: 20220607
